FAERS Safety Report 25163175 (Version 2)
Quarter: 2025Q2

REPORT INFORMATION
  Report Type: Spontaneous
  Country: US (occurrence: US)
  Receive Date: 20250404
  Receipt Date: 20250408
  Transmission Date: 20250716
  Serious: No
  Sender: GLAUKOS
  Company Number: US-GLK-000620

PATIENT

DRUGS (2)
  1. PHOTREXA VISCOUS [Suspect]
     Active Substance: RIBOFLAVIN 5^-PHOSPHATE SODIUM
     Indication: Product used for unknown indication
     Route: 047
  2. PHOTREXA [Suspect]
     Active Substance: RIBOFLAVIN 5^-PHOSPHATE SODIUM
     Indication: Product used for unknown indication
     Route: 047

REACTIONS (1)
  - Staphylococcal infection [Unknown]
